FAERS Safety Report 14320053 (Version 1)
Quarter: 2017Q4

REPORT INFORMATION
  Report Type: Spontaneous
  Country: US (occurrence: US)
  Receive Date: 20171222
  Receipt Date: 20171222
  Transmission Date: 20180321
  Serious: Yes (Hospitalization, Other)
  Sender: FDA-Public Use
  Company Number: US-PFIZER INC-2017540674

PATIENT
  Age: 69 Year
  Sex: Male
  Weight: 75 kg

DRUGS (15)
  1. TRAZODONE [Concomitant]
     Active Substance: TRAZODONE HYDROCHLORIDE
     Dosage: 75 MG, UNK
     Route: 048
  2. COLESTID [Suspect]
     Active Substance: COLESTIPOL HYDROCHLORIDE
     Indication: CROHN^S DISEASE
     Dosage: 3 PILLS, 2X/DAY
     Route: 048
  3. XANAX [Concomitant]
     Active Substance: ALPRAZOLAM
     Indication: SLEEP DISORDER
     Dosage: 2 MG, 1X/DAY EVERY NIGHT
     Route: 048
     Dates: start: 2002
  4. HUMALOG [Concomitant]
     Active Substance: INSULIN LISPRO
     Dosage: 1 UNIT FOR EVERY 20 OVER 120
     Dates: start: 2005
  5. METOPROLOL SUCCINATE. [Concomitant]
     Active Substance: METOPROLOL SUCCINATE
     Indication: BLOOD PRESSURE MEASUREMENT
     Dosage: 25 MG, 1X/DAY
     Route: 048
  6. TOPIRAMATE. [Concomitant]
     Active Substance: TOPIRAMATE
     Dosage: 150 MG, DAILY (100MG BY MOUTH IN THE EVENING; 50MG IN THE MORNING)
     Route: 048
  7. TRAZODONE [Concomitant]
     Active Substance: TRAZODONE HYDROCHLORIDE
     Indication: SLEEP DISORDER
     Dosage: 150 MG, 1X/DAY AT NIGHT
     Route: 048
     Dates: start: 2002
  8. FOLIC ACID. [Concomitant]
     Active Substance: FOLIC ACID
     Dosage: 1 MG, 1X/DAY IN THE MORNING
     Route: 048
  9. POTASSIUM CITRATE. [Concomitant]
     Active Substance: POTASSIUM CITRATE
     Indication: RENAL DISORDER
     Dosage: 10 MG, 1X/DAY
     Route: 048
  10. TOPIRAMATE. [Concomitant]
     Active Substance: TOPIRAMATE
     Indication: HEADACHE
     Dosage: 150 MG, DAILY (100MG IN THE EVENING; 50MG IN THE MORNING)
     Route: 048
  11. LANTUS [Concomitant]
     Active Substance: INSULIN GLARGINE
     Indication: DIABETES MELLITUS
     Dosage: 20 UNITS TWICE A DAY INJECTION
     Dates: start: 2005
  12. FINASTERIDE. [Concomitant]
     Active Substance: FINASTERIDE
     Indication: PROSTATIC DISORDER
     Dosage: 5 MG, 1X/DAY IN THE MORNING
     Route: 048
  13. COLESTID [Suspect]
     Active Substance: COLESTIPOL HYDROCHLORIDE
     Dosage: 4 PILLS, 2X/DAY
     Route: 048
  14. COLESTID [Suspect]
     Active Substance: COLESTIPOL HYDROCHLORIDE
     Dosage: 5 PILLS, 2X/DAY
     Route: 048
  15. ECOTRIN [Concomitant]
     Active Substance: ASPIRIN
     Dosage: 325 MG, 1X/DAY IN THE MORNING
     Route: 048

REACTIONS (6)
  - Dysphagia [Unknown]
  - Oesophageal injury [Recovering/Resolving]
  - Joint range of motion decreased [Unknown]
  - Road traffic accident [Unknown]
  - Upper limb fracture [Recovering/Resolving]
  - Wrong technique in product usage process [Unknown]

NARRATIVE: CASE EVENT DATE: 20160615
